FAERS Safety Report 8247029-3 (Version None)
Quarter: 2012Q1

REPORT INFORMATION
  Report Type: 
  Country: None (occurrence: None)
  Receive Date: 20120330
  Receipt Date: 20120330
  Transmission Date: 20120608
  Serious: Yes (Other)
  Sender: FDA-Public Use
  Company Number: None

PATIENT
  Age: 63 Year
  Sex: Male
  Weight: 81.646 kg

DRUGS (1)
  1. LIPITOR [Suspect]
     Indication: BLOOD CHOLESTEROL INCREASED
     Dosage: 1 TABLET
     Route: 048
     Dates: start: 20080101, end: 20080601

REACTIONS (3)
  - MYALGIA [None]
  - DECREASED APPETITE [None]
  - NEUROPATHY PERIPHERAL [None]
